FAERS Safety Report 21775470 (Version 1)
Quarter: 2022Q4

REPORT INFORMATION
  Report Type: Report from Study
  Country: ES (occurrence: ES)
  Receive Date: 20221226
  Receipt Date: 20221226
  Transmission Date: 20230112
  Serious: Yes (Hospitalization, Other)
  Sender: FDA-Public Use
  Company Number: ES-JNJFOC-20200949620

PATIENT
  Age: 72 Year
  Sex: Male
  Weight: 66.2 kg

DRUGS (3)
  1. CARFILZOMIB [Suspect]
     Active Substance: CARFILZOMIB
     Indication: Plasma cell myeloma
     Dosage: RECENT DOSE: 22-SEP-2020THREE TIMES EACH 28 DAYS (ADMINISTERED ON DAYS 1, 8 AND 15 OF THE CYCLE)
     Route: 065
     Dates: start: 20190924
  2. DARATUMUMAB [Suspect]
     Active Substance: DARATUMUMAB
     Indication: Plasma cell myeloma
     Dosage: RECENT DOSE: 22-SEP-2020
     Route: 058
     Dates: start: 20190924
  3. DEXAMETHASONE [Concomitant]
     Active Substance: DEXAMETHASONE
     Indication: Plasma cell myeloma
     Dosage: RECENT DOSE: 23-SEP-2020, THREE TIMES EACH 28 DAYS (ADMINISTERED ON DAY 1 (20MG), DAY 2 (20MG), DAY
     Route: 065
     Dates: start: 20190924

REACTIONS (1)
  - Hip fracture [Recovered/Resolved]

NARRATIVE: CASE EVENT DATE: 20200925
